FAERS Safety Report 5345575-3 (Version None)
Quarter: 2007Q2

REPORT INFORMATION
  Report Type: 
  Country: None (occurrence: None)
  Receive Date: 20070605
  Receipt Date: 20060512
  Transmission Date: 20071010
  Serious: No
  Sender: FDA-Public Use
  Company Number: US-ASTRAZENECA-2006UW09441

PATIENT
  Age: 76 Year
  Sex: Male
  Weight: 64.4 kg

DRUGS (1)
  1. PRILOSEC [Suspect]
     Indication: GASTROOESOPHAGEAL REFLUX DISEASE
     Route: 048
     Dates: start: 20060201

REACTIONS (5)
  - BRADYPHRENIA [None]
  - DRUG INEFFECTIVE [None]
  - DRY MOUTH [None]
  - ERUCTATION [None]
  - STOMACH DISCOMFORT [None]
